FAERS Safety Report 4984059-9 (Version None)
Quarter: 2006Q1

REPORT INFORMATION
  Report Type: 
  Country: None (occurrence: None)
  Receive Date: 20060302
  Receipt Date: 20051122
  Transmission Date: 20060701
  Serious: No
  Sender: FDA-Public Use
  Company Number: S05-USA-05016-01

PATIENT
  Age: 41 Year
  Sex: Male

DRUGS (5)
  1. CAMPRAL [Suspect]
     Indication: ALCOHOLISM
     Dosage: 666 MG TID PO
     Route: 048
     Dates: start: 20051022, end: 20051114
  2. CAMPRAL [Suspect]
     Indication: ALCOHOLISM
     Dosage: 666 MG QD PO
     Route: 048
     Dates: start: 20051115, end: 20051120
  3. CAMPRAL [Suspect]
     Indication: ALCOHOLISM
     Dosage: 666 MG BID PO
     Route: 048
     Dates: start: 20051121, end: 20051121
  4. RISPERDAL [Concomitant]
  5. ANTICONVULSANT (NOS) [Concomitant]

REACTIONS (1)
  - PRURITUS [None]
